FAERS Safety Report 10202431 (Version 1)
Quarter: 2014Q2

REPORT INFORMATION
  Report Type: Spontaneous
  Country: IT (occurrence: IT)
  Receive Date: 20140528
  Receipt Date: 20140528
  Transmission Date: 20141212
  Serious: Yes (Hospitalization)
  Sender: FDA-Public Use
  Company Number: IT-TEVA-482667ISR

PATIENT
  Age: 69 Year
  Sex: Male
  Weight: 70 kg

DRUGS (3)
  1. CISPLATINO TEVA ITALIA [Suspect]
     Indication: ADENOCARCINOMA GASTRIC
     Dosage: 80 MG/M2 DAILY;
     Route: 042
     Dates: start: 20140414, end: 20140414
  2. FLUOROURACILE TEVA [Suspect]
     Indication: ADENOCARCINOMA GASTRIC
     Dosage: 800 MG/M2 DAILY;
     Route: 042
     Dates: start: 20140414, end: 20140414
  3. HERCEPTIN [Suspect]
     Indication: ADENOCARCINOMA GASTRIC
     Dosage: 8 MG/KG DAILY;
     Route: 042
     Dates: start: 20140414, end: 20140414

REACTIONS (3)
  - Fatigue [Recovering/Resolving]
  - Decreased appetite [Recovering/Resolving]
  - General physical health deterioration [Recovering/Resolving]
